FAERS Safety Report 21046596 (Version 2)
Quarter: 2022Q3

REPORT INFORMATION
  Report Type: Spontaneous
  Country: FR (occurrence: FR)
  Receive Date: 20220706
  Receipt Date: 20220908
  Transmission Date: 20221026
  Serious: Yes (Death, Hospitalization)
  Sender: FDA-Public Use
  Company Number: FR-MACLEODS PHARMA UK LTD-MAC2022036216

PATIENT
  Sex: Male

DRUGS (6)
  1. ARIPIPRAZOLE [Interacting]
     Active Substance: ARIPIPRAZOLE
     Indication: Schizophrenia
     Dosage: 225 MILLIGRAM (225 MILLIGRAM,THE 3 DAYS)
     Route: 065
  2. ARIPIPRAZOLE [Interacting]
     Active Substance: ARIPIPRAZOLE
     Dosage: 30 MILLIGRAM, QD
     Route: 065
  3. ARIPIPRAZOLE [Interacting]
     Active Substance: ARIPIPRAZOLE
     Dosage: 15 MILLIGRAM, MONTHLY
     Route: 065
  4. PALIPERIDONE [Interacting]
     Active Substance: PALIPERIDONE
     Indication: Schizophrenia
     Dosage: 150 MILLIGRAM, MONTHLY
     Route: 030
  5. PALIPERIDONE [Interacting]
     Active Substance: PALIPERIDONE
     Dosage: 75 MILLIGRAM
     Route: 030
  6. RISPERIDONE [Concomitant]
     Active Substance: RISPERIDONE
     Indication: Schizophrenia
     Dosage: 4 MILLIGRAM, QD
     Route: 065

REACTIONS (5)
  - Completed suicide [Fatal]
  - Overdose [Fatal]
  - Psychotic disorder [Unknown]
  - Paradoxical drug reaction [Unknown]
  - Drug interaction [Unknown]
